FAERS Safety Report 9456235 (Version 2)
Quarter: 2013Q3

REPORT INFORMATION
  Report Type: Spontaneous
  Country: GB (occurrence: GB)
  Receive Date: 20130813
  Receipt Date: 20130913
  Transmission Date: 20140515
  Serious: Yes (Other)
  Sender: FDA-Public Use
  Company Number: GB-BRISTOL-MYERS SQUIBB COMPANY-19115021

PATIENT
  Age: 66 Year
  Sex: Male

DRUGS (1)
  1. HYDREA CAPS 500 MG [Suspect]
     Indication: PSORIASIS
     Dosage: 500MG CAPS - 3 CAPS DAILY
     Route: 048
     Dates: start: 201302

REACTIONS (3)
  - Paraesthesia [Not Recovered/Not Resolved]
  - Off label use [Unknown]
  - Blood test abnormal [Unknown]
